FAERS Safety Report 7308101-5 (Version None)
Quarter: 2011Q1

REPORT INFORMATION
  Report Type: 
  Country: None (occurrence: None)
  Receive Date: 20110223
  Receipt Date: 20110215
  Transmission Date: 20110831
  Serious: Yes (Hospitalization)
  Sender: FDA-Public Use
  Company Number: NL-ROCHE-754712

PATIENT
  Sex: Female
  Weight: 61 kg

DRUGS (3)
  1. CARBOPLATIN [Suspect]
     Indication: OVARIAN CANCER
     Route: 042
     Dates: start: 20100317, end: 20100714
  2. BEVACIZUMAB [Suspect]
     Indication: OVARIAN CANCER
     Dosage: FORM: INFUSION. TEMPORARILY INTERRUPTED. LAST DOSE PRIOR TO SAE: 28 DECEMBER 2010
     Route: 042
     Dates: start: 20100317, end: 20110118
  3. PACLITAXEL [Suspect]
     Indication: OVARIAN CANCER
     Route: 042
     Dates: start: 20100317, end: 20100728

REACTIONS (1)
  - APPENDICITIS [None]
